FAERS Safety Report 7854911-5 (Version None)
Quarter: 2011Q4

REPORT INFORMATION
  Report Type: 
  Country: None (occurrence: None)
  Receive Date: 20111026
  Receipt Date: 20111014
  Transmission Date: 20120403
  Serious: Yes (Hospitalization)
  Sender: FDA-Public Use
  Company Number: PHHO2011US17436

PATIENT
  Sex: Male
  Weight: 75.6 kg

DRUGS (9)
  1. BLINDED ALISKIREN [Suspect]
     Dosage: CODE NOT BROKEN
     Route: 048
     Dates: start: 20111012
  2. BLINDED PLACEBO [Suspect]
     Dosage: CODE NOT BROKEN
     Route: 048
     Dates: start: 20111012
  3. LABETALOL HCL [Suspect]
     Indication: HYPERTENSION
     Dosage: 200 MG, BID
     Dates: start: 20101217
  4. BLINDED NO TREATMENT RECEIVED [Suspect]
     Indication: CARDIOVASCULAR DISORDER
     Dosage: CODE NOT BROKEN
     Route: 048
     Dates: start: 20080916, end: 20101001
  5. BLINDED NO TREATMENT RECEIVED [Suspect]
     Dosage: CODE NOT BROKEN
     Route: 048
     Dates: start: 20111012
  6. BLINDED ALISKIREN [Suspect]
     Indication: CARDIOVASCULAR DISORDER
     Dosage: CODE NOT BROKEN
     Route: 048
     Dates: start: 20080916, end: 20101001
  7. BLINDED PLACEBO [Suspect]
     Indication: CARDIOVASCULAR DISORDER
     Dosage: CODE NOT BROKEN
     Route: 048
     Dates: start: 20080916, end: 20101001
  8. AMLODIPINE [Suspect]
     Indication: HYPERTENSION
     Dosage: 10 MG, UNK
     Dates: start: 20110518
  9. LOSARTAN POTASSIUM [Suspect]
     Indication: HYPERTENSION
     Dosage: 100 MG, UNK
     Dates: start: 20100911

REACTIONS (2)
  - HYPOTENSION [None]
  - CARDIAC ARREST [None]
